FAERS Safety Report 4680999-9 (Version None)
Quarter: 2005Q2

REPORT INFORMATION
  Report Type: 
  Country: None (occurrence: None)
  Receive Date: 20050601
  Receipt Date: 20050523
  Transmission Date: 20051028
  Serious: Yes (Hospitalization, Other)
  Sender: FDA-Public Use
  Company Number: 200512164BCC

PATIENT
  Age: 77 Year
  Sex: Female
  Weight: 44.4525 kg

DRUGS (5)
  1. ASPIRIN EC REGIMEN BAYER ENTERIC COATED ASPIRIN (ACETYLSALICYLIC ACID) [Suspect]
     Dosage: 81 MG, QD, ORAL
     Route: 048
     Dates: start: 20031101
  2. HUMULIN [Concomitant]
  3. PROPOXYPHENE HCL [Concomitant]
  4. NITROGLYCERIN [Concomitant]
  5. PLAVIX [Concomitant]

REACTIONS (2)
  - BLOOD GLUCOSE DECREASED [None]
  - MYOCARDIAL INFARCTION [None]
